FAERS Safety Report 11459561 (Version 1)
Quarter: 2015Q3

REPORT INFORMATION
  Report Type: Spontaneous
  Country: US (occurrence: US)
  Receive Date: 20150904
  Receipt Date: 20150904
  Transmission Date: 20151125
  Serious: No
  Sender: FDA-Public Use
  Company Number: US-TARO-2015TAR00359

PATIENT
  Sex: Male

DRUGS (2)
  1. WARFARIN SODIUM TABLETS USP 5MG [Suspect]
     Active Substance: WARFARIN SODIUM
     Indication: CARDIAC DISORDER
     Dosage: 5 MG, 1X/DAY
     Dates: start: 1968
  2. WARFARIN SODIUM TABLETS USP 5MG [Suspect]
     Active Substance: WARFARIN SODIUM
     Dosage: 7.5 MG, 1X/DAY

REACTIONS (4)
  - Decreased appetite [Not Recovered/Not Resolved]
  - International normalised ratio decreased [Unknown]
  - Weight decreased [Not Recovered/Not Resolved]
  - Fall [Unknown]
